FAERS Safety Report 16676881 (Version 1)
Quarter: 2019Q3

REPORT INFORMATION
  Report Type: Spontaneous
  Country: NO (occurrence: NO)
  Receive Date: 20190807
  Receipt Date: 20190807
  Transmission Date: 20191004
  Serious: Yes (Life-Threatening)
  Sender: FDA-Public Use
  Company Number: NO-ACCORD-150476

PATIENT
  Age: 18 Year
  Sex: Female

DRUGS (13)
  1. ONDANSETRON [Suspect]
     Active Substance: ONDANSETRON
     Indication: CHOLECYSTECTOMY
     Dates: start: 20190711, end: 20190711
  2. DEXAMETHASONE. [Suspect]
     Active Substance: DEXAMETHASONE
     Indication: CHOLECYSTECTOMY
     Dates: start: 20190711, end: 20190711
  3. KETOROLAC [Suspect]
     Active Substance: KETOROLAC TROMETHAMINE
     Indication: CHOLECYSTECTOMY
     Dates: start: 20190711, end: 20190711
  4. OXYCODONE/OXYCODONE HYDROCHLORIDE/OXYCODONE PECTINATE/OXYCODONE TEREPHTHALATE [Suspect]
     Active Substance: OXYCODONE
     Indication: CHOLECYSTECTOMY
     Dates: start: 20190711, end: 20190711
  5. CISATRACURIUM/CISATRACURIUM BESILATE [Suspect]
     Active Substance: CISATRACURIUM BESYLATE
     Indication: CHOLECYSTECTOMY
     Dates: start: 20190711, end: 20190711
  6. FENTANYL. [Suspect]
     Active Substance: FENTANYL
     Indication: CHOLECYSTECTOMY
     Dates: start: 20190711, end: 20190711
  7. PARACETAMOL [Suspect]
     Active Substance: ACETAMINOPHEN
     Indication: CHOLECYSTECTOMY
     Dates: start: 20190711, end: 20190711
  8. PROPOFOL. [Suspect]
     Active Substance: PROPOFOL
     Indication: CHOLECYSTECTOMY
     Dates: start: 20190711, end: 20190711
  9. REMIFENTANIL/REMIFENTANIL HYDROCHLORIDE [Suspect]
     Active Substance: REMIFENTANIL HYDROCHLORIDE
     Indication: CHOLECYSTECTOMY
     Route: 042
     Dates: start: 20190711, end: 20190711
  10. CYCLIZINE [Suspect]
     Active Substance: CYCLIZINE
     Indication: NAUSEA
     Dates: start: 20190711, end: 20190711
  11. ESOMEPRAZOLE/ESOMEPRAZOLE MAGNESIUM/ESOMEPRAZOLE SODIUM [Suspect]
     Active Substance: ESOMEPRAZOLE
     Indication: CHOLECYSTECTOMY
     Dates: start: 20190711, end: 20190711
  12. DALTEPARIN [Suspect]
     Active Substance: DALTEPARIN
     Indication: CHOLECYSTECTOMY
     Route: 058
     Dates: start: 20190711, end: 20190711
  13. DEXMEDETOMIDINE. [Suspect]
     Active Substance: DEXMEDETOMIDINE
     Indication: CHOLECYSTECTOMY
     Dates: start: 20190711, end: 20190711

REACTIONS (1)
  - Anaphylactic reaction [Recovered/Resolved]

NARRATIVE: CASE EVENT DATE: 20190711
